FAERS Safety Report 11009006 (Version 1)
Quarter: 2015Q2

REPORT INFORMATION
  Report Type: Spontaneous
  Country: BE (occurrence: None)
  Receive Date: 20150408
  Receipt Date: 20150408
  Transmission Date: 20150821
  Serious: Yes (Hospitalization, Other)
  Sender: FDA-Public Use
  Company Number: BE-2015TEC0000016

PATIENT
  Age: 36 Year
  Sex: Male

DRUGS (3)
  1. FONDAPARINUX [Concomitant]
     Active Substance: FONDAPARINUX
  2. HEPARIN SODIUM. [Suspect]
     Active Substance: HEPARIN SODIUM
     Indication: PRODUCT USED FOR UNKNOWN INDICATION
  3. NADROPARIN [Concomitant]
     Active Substance: NADROPARIN

REACTIONS (5)
  - Ankle fracture [None]
  - Fractured sacrum [None]
  - Heparin-induced thrombocytopenia [None]
  - Fall [None]
  - Peripheral artery thrombosis [None]
